FAERS Safety Report 6236959-X (Version None)
Quarter: 2009Q2

REPORT INFORMATION
  Report Type: 
  Country: None (occurrence: None)
  Receive Date: 20090619
  Receipt Date: 20090227
  Transmission Date: 20091009
  Serious: No
  Sender: FDA-Public Use
  Company Number: US-ASTRAZENECA-2009UW05560

PATIENT
  Age: 32112 Day
  Sex: Female
  Weight: 67.1 kg

DRUGS (9)
  1. SYMBICORT [Suspect]
     Indication: ASTHMA
     Dosage: 160/4.5 UG, 2 PUFFS, BID
     Route: 055
     Dates: start: 20090210, end: 20090226
  2. LEVOTHYROXINE SODIUM [Concomitant]
  3. DIOVAN HCT [Concomitant]
  4. ZETIA [Concomitant]
  5. PREDNISONE [Concomitant]
  6. WARFARIN SODIUM [Concomitant]
  7. SPIRIVA [Concomitant]
  8. LUTEIN [Concomitant]
  9. ALBUTEROL/IBITROPIUM [Concomitant]

REACTIONS (4)
  - COUGH [None]
  - INSOMNIA [None]
  - OROPHARYNGEAL PAIN [None]
  - SOMNOLENCE [None]
